FAERS Safety Report 6641571-4 (Version None)
Quarter: 2010Q1

REPORT INFORMATION
  Report Type: 
  Country: None (occurrence: None)
  Receive Date: 20100317
  Receipt Date: 20100317
  Transmission Date: 20100710
  Serious: Yes (Other)
  Sender: FDA-Public Use
  Company Number: None

PATIENT
  Age: 73 Year
  Sex: Male
  Weight: 80 kg

DRUGS (9)
  1. INSULIN. ASPART [Suspect]
     Indication: HYPERKALAEMIA
     Dosage: 10 UNITS ONCE IV
     Route: 042
     Dates: start: 20100120, end: 20100120
  2. CARVEDILOL [Concomitant]
  3. DIGOXIN [Concomitant]
  4. FLUOXETINE [Concomitant]
  5. FUROSEMIDE [Concomitant]
  6. LISINOPRIL [Concomitant]
  7. PREGABALIN [Concomitant]
  8. LANSOPRAZOLE [Concomitant]
  9. SPIRONOLACTONE [Concomitant]

REACTIONS (1)
  - HYPOGLYCAEMIA [None]
